FAERS Safety Report 5894352-3 (Version None)
Quarter: 2008Q3

REPORT INFORMATION
  Report Type: 
  Country: None (occurrence: None)
  Receive Date: 20080922
  Receipt Date: 20080909
  Transmission Date: 20090109
  Serious: Yes (Hospitalization)
  Sender: FDA-Public Use
  Company Number: 238010J08USA

PATIENT
  Age: 63 Year
  Sex: Female
  Weight: 78.0187 kg

DRUGS (8)
  1. REBIF [Suspect]
     Indication: MULTIPLE SCLEROSIS
     Dosage: 8.8 MCG, 3 IN 1 WEEKS, SUBCUTANEOUS
     Route: 058
     Dates: start: 20080808
  2. RECLAST [Suspect]
     Indication: OSTEOPOROSIS
     Dosage: 1 IN 1 YEARS, INTRAVENOUS ( NOT OTHERWISE SPECIFIED)
     Route: 042
     Dates: start: 20080801, end: 20080801
  3. BACLOFEN [Concomitant]
  4. PLAVIX [Concomitant]
  5. NEURONTIN [Concomitant]
  6. LIPITOR [Concomitant]
  7. TRICOR [Concomitant]
  8. METFORMIN HCL [Concomitant]

REACTIONS (4)
  - ABASIA [None]
  - HEADACHE [None]
  - MOVEMENT DISORDER [None]
  - PYREXIA [None]
